FAERS Safety Report 6155278-3 (Version None)
Quarter: 2009Q2

REPORT INFORMATION
  Report Type: 
  Country: None (occurrence: None)
  Receive Date: 20090415
  Receipt Date: 20090124
  Transmission Date: 20091009
  Serious: Yes (Hospitalization)
  Sender: FDA-Public Use
  Company Number: GB-NOVOPROD-283507

PATIENT
  Sex: Male

DRUGS (2)
  1. NOVORAPID PENFILL [Suspect]
     Indication: INSULIN-REQUIRING TYPE 2 DIABETES MELLITUS
     Dosage: 50-42
     Route: 058
  2. NOVOLOG MIX 70/30 [Concomitant]
     Dosage: 50-42
     Route: 058

REACTIONS (4)
  - BLOOD GLUCOSE FLUCTUATION [None]
  - DRUG DISPENSING ERROR [None]
  - HYPOGLYCAEMIC SEIZURE [None]
  - MUSCLE TIGHTNESS [None]
